FAERS Safety Report 14985080 (Version 2)
Quarter: 2018Q3

REPORT INFORMATION
  Report Type: Report from Study
  Country: US (occurrence: US)
  Receive Date: 20180607
  Receipt Date: 20180907
  Transmission Date: 20181010
  Serious: Yes (Hospitalization)
  Sender: FDA-Public Use
  Company Number: US-EISAI MEDICAL RESEARCH-EC-2018-040891

PATIENT
  Age: 66 Year
  Sex: Female

DRUGS (7)
  1. LENVIMA [Suspect]
     Active Substance: LENVATINIB
     Indication: THYROID CANCER
     Route: 048
     Dates: start: 201503
  2. METOPROLOL. [Concomitant]
     Active Substance: METOPROLOL
  3. GABAPENTIN. [Concomitant]
     Active Substance: GABAPENTIN
  4. PRADAXA [Concomitant]
     Active Substance: DABIGATRAN ETEXILATE MESYLATE
  5. LEVOTHYROXINE. [Concomitant]
     Active Substance: LEVOTHYROXINE
  6. PRILOSEC [Concomitant]
     Active Substance: OMEPRAZOLE MAGNESIUM
  7. MULTAQ [Concomitant]
     Active Substance: DRONEDARONE

REACTIONS (10)
  - Pain in extremity [Not Recovered/Not Resolved]
  - Stomatitis [Unknown]
  - Oral discomfort [Not Recovered/Not Resolved]
  - Blood pressure increased [Recovering/Resolving]
  - Asthenia [Not Recovered/Not Resolved]
  - Peripheral swelling [Recovering/Resolving]
  - Nausea [Not Recovered/Not Resolved]
  - Weight decreased [Not Recovered/Not Resolved]
  - Abdominal pain upper [Not Recovered/Not Resolved]
  - Fatigue [Not Recovered/Not Resolved]

NARRATIVE: CASE EVENT DATE: 2018
